FAERS Safety Report 23199158 (Version 2)
Quarter: 2024Q2

REPORT INFORMATION
  Report Type: Spontaneous
  Country: US (occurrence: US)
  Receive Date: 20231117
  Receipt Date: 20240517
  Transmission Date: 20240716
  Serious: No
  Sender: FDA-Public Use
  Company Number: US-Stemline Therapeutics, Inc.-2023ST003001

PATIENT
  Age: 72 Year
  Sex: Female
  Weight: 63.56 kg

DRUGS (2)
  1. ORSERDU [Suspect]
     Active Substance: ELACESTRANT
     Indication: Breast cancer
     Dosage: 345MG ONCE DAILY
     Route: 048
     Dates: start: 20230428, end: 20230811
  2. ORSERDU [Suspect]
     Active Substance: ELACESTRANT
     Dosage: UNKNOWN
     Dates: start: 202303, end: 202312

REACTIONS (5)
  - Pain [Recovered/Resolved]
  - Burning sensation [Unknown]
  - Diarrhoea [Recovered/Resolved]
  - Constipation [Recovered/Resolved]
  - Drug ineffective [Unknown]

NARRATIVE: CASE EVENT DATE: 20230301
